FAERS Safety Report 10157235 (Version 1)
Quarter: 2014Q2

REPORT INFORMATION
  Report Type: Spontaneous
  Country: US (occurrence: US)
  Receive Date: 20140507
  Receipt Date: 20140507
  Transmission Date: 20141212
  Serious: No
  Sender: FDA-Public Use
  Company Number: US-TEVA-479846USA

PATIENT
  Age: 21 Year
  Sex: Female
  Weight: 58.11 kg

DRUGS (1)
  1. PARAGARD 380A [Suspect]
     Indication: POST COITAL CONTRACEPTION
     Route: 015
     Dates: start: 20131009, end: 20140501

REACTIONS (1)
  - Device expulsion [Recovered/Resolved]
